FAERS Safety Report 26025933 (Version 1)
Quarter: 2025Q4

REPORT INFORMATION
  Report Type: Spontaneous
  Country: US (occurrence: None)
  Receive Date: 20251110
  Receipt Date: 20251110
  Transmission Date: 20260118
  Serious: Yes (Other)
  Sender: FDA-CTU
  Company Number: None

PATIENT
  Age: 71 Year
  Sex: Female

DRUGS (1)
  1. KISQALI [Suspect]
     Active Substance: RIBOCICLIB SUCCINATE
     Dosage: 600MG DAILY FOR 21 DAYS OF A 28 DAY CYCLE

REACTIONS (5)
  - Hypersensitivity [None]
  - Cough [None]
  - Throat irritation [None]
  - Swollen tongue [None]
  - Therapy cessation [None]
